FAERS Safety Report 25241108 (Version 1)
Quarter: 2025Q2

REPORT INFORMATION
  Report Type: Spontaneous
  Country: JP (occurrence: JP)
  Receive Date: 20250425
  Receipt Date: 20250425
  Transmission Date: 20250717
  Serious: Yes (Other)
  Sender: REGENERON
  Company Number: JP-BAYER-2025A055904

PATIENT
  Age: 62 Year
  Sex: Female

DRUGS (1)
  1. EYLEA HD [Suspect]
     Active Substance: AFLIBERCEPT
     Indication: Product used for unknown indication

REACTIONS (3)
  - Nephrotic syndrome [Unknown]
  - Protein urine present [Unknown]
  - Renal disorder [Unknown]
